FAERS Safety Report 25336040 (Version 2)
Quarter: 2025Q2

REPORT INFORMATION
  Report Type: Report from Study
  Country: CN (occurrence: CN)
  Receive Date: 20250520
  Receipt Date: 20250602
  Transmission Date: 20250717
  Serious: Yes (Death, Hospitalization)
  Sender: ROCHE
  Company Number: CN-ROCHE-10000283159

PATIENT
  Age: 85 Year
  Sex: Male

DRUGS (1)
  1. ATEZOLIZUMAB [Suspect]
     Active Substance: ATEZOLIZUMAB
     Indication: Small cell lung cancer
     Dosage: 1 VIAL
     Route: 042
     Dates: start: 20241014, end: 20250119

REACTIONS (5)
  - Pneumonia [Not Recovered/Not Resolved]
  - Dermatitis [Recovered/Resolved]
  - Hyperpyrexia [Unknown]
  - Disease progression [Fatal]
  - Drug ineffective [Unknown]

NARRATIVE: CASE EVENT DATE: 20250101
